FAERS Safety Report 8272257-0 (Version None)
Quarter: 2012Q2

REPORT INFORMATION
  Report Type: 
  Country: None (occurrence: None)
  Receive Date: 20120410
  Receipt Date: 20120405
  Transmission Date: 20120825
  Serious: Yes (Death)
  Sender: FDA-Public Use
  Company Number: PHHY2012NL029721

PATIENT
  Age: 79 Year
  Sex: Male

DRUGS (8)
  1. NADROPARIN [Concomitant]
     Dosage: 7600 ANTI-XA UNITS TWICE DAILY
  2. CARBASALATE CALCIUM [Concomitant]
     Dosage: 80 MG ONCE DAILY AFTER A LOADING DOSE OF 300 MG
  3. CIPROFLOXACIN HYDROCHLORIDE [Suspect]
     Indication: BRONCHOPNEUMONIA
     Dosage: 500 MG, BID
  4. AMOXICILLIN AND CLAVULANATE POTASSIUM [Concomitant]
     Indication: BRONCHOPNEUMONIA
     Dosage: 1000/200 MG 4 TIMES DAILY
  5. CLOPIDOGREL [Concomitant]
     Dosage: 75 MG ONCE DAILY AFTER A LOADING DOSE OF 300 MG
  6. ERLOTINIB HYDROCHLORIDE [Interacting]
     Indication: NON-SMALL CELL LUNG CANCER STAGE IIIB
     Dosage: 150 MG, QD
  7. METOPROLOL SUCCINATE [Concomitant]
     Dosage: 50 MG, QD
  8. SIMVASTATIN [Concomitant]
     Dosage: 40 MG, QD

REACTIONS (5)
  - BRONCHIOLITIS [None]
  - INTERSTITIAL LUNG DISEASE [None]
  - RESPIRATORY FAILURE [None]
  - DYSPNOEA [None]
  - CARDIAC FAILURE [None]
